FAERS Safety Report 10489384 (Version 2)
Quarter: 2016Q1

REPORT INFORMATION
  Report Type: Spontaneous
  Country: US (occurrence: US)
  Receive Date: 20140815
  Receipt Date: 20160325
  Transmission Date: 20160525
  Serious: Yes (Life-Threatening, Hospitalization, Other)
  Sender: FDA-Public Use
  Company Number: ADR-2013-02156

PATIENT
  Age: 27 Year
  Sex: Male

DRUGS (1)
  1. BACLOFEN. [Suspect]
     Active Substance: BACLOFEN
     Indication: MUSCLE SPASTICITY
     Dosage: 1169.5 MCG/DAY
     Route: 037

REACTIONS (4)
  - Underdose [Recovering/Resolving]
  - Seizure [Recovering/Resolving]
  - Muscle spasticity [Recovering/Resolving]
  - Drug withdrawal syndrome [Recovering/Resolving]
